FAERS Safety Report 8982935 (Version 3)
Quarter: 2013Q2

REPORT INFORMATION
  Report Type: Spontaneous
  Country: US (occurrence: US)
  Receive Date: 20121224
  Receipt Date: 20130517
  Transmission Date: 20140414
  Serious: Yes (Other)
  Sender: FDA-Public Use
  Company Number: US-PURDUE-USA-2012-0097148

PATIENT
  Age: 56 Year
  Sex: Female
  Weight: 80.73 kg

DRUGS (7)
  1. OXYCONTIN (NDA 22-272) [Suspect]
     Indication: PAIN
     Dosage: 120 MG, Q12H
     Route: 048
     Dates: start: 200303
  2. LANTUS [Concomitant]
     Indication: PRODUCT USED FOR UNKNOWN INDICATION
     Dosage: 800 UNK, DAILY
  3. DIOVAN [Concomitant]
     Indication: PRODUCT USED FOR UNKNOWN INDICATION
     Dosage: 160/25 HCT DAILY
  4. BYSTOLIC [Concomitant]
     Indication: PRODUCT USED FOR UNKNOWN INDICATION
     Dosage: 10 MG, DAILY
  5. METFORMIN [Concomitant]
     Indication: PRODUCT USED FOR UNKNOWN INDICATION
     Dosage: 1000 MG, BID
  6. AMBIEN [Concomitant]
     Dosage: 10 MG, HS
  7. FLEXERIL                           /00428402/ [Concomitant]
     Indication: PRODUCT USED FOR UNKNOWN INDICATION
     Dosage: 10 MG, HS

REACTIONS (6)
  - Drug dependence [Unknown]
  - Hepatic cirrhosis [Unknown]
  - Gallbladder enlargement [Unknown]
  - Drug withdrawal syndrome [Unknown]
  - Pain [Unknown]
  - Drug effect decreased [Unknown]
